FAERS Safety Report 11264215 (Version 1)
Quarter: 2015Q3

REPORT INFORMATION
  Report Type: Spontaneous
  Country: US (occurrence: US)
  Receive Date: 20150713
  Receipt Date: 20150713
  Transmission Date: 20151125
  Serious: No
  Sender: FDA-Public Use
  Company Number: US-JNJFOC-20150622675

PATIENT
  Age: 47 Year
  Sex: Female
  Weight: 54.43 kg

DRUGS (3)
  1. ELMIRON [Suspect]
     Active Substance: PENTOSAN POLYSULFATE SODIUM
     Indication: CYSTITIS INTERSTITIAL
     Route: 048
     Dates: start: 201408
  2. OMEPRAZOLE. [Concomitant]
     Active Substance: OMEPRAZOLE
     Indication: ULCER
     Route: 048
     Dates: start: 2011
  3. ESTROGEN [Concomitant]
     Active Substance: ESTRONE\SUS SCROFA OVARY
     Indication: MENOPAUSE
     Route: 048
     Dates: start: 2011

REACTIONS (7)
  - Inappropriate schedule of drug administration [Unknown]
  - Polyuria [Unknown]
  - Nightmare [Unknown]
  - Pain [Unknown]
  - Malaise [Unknown]
  - Drug dose omission [Unknown]
  - Mood swings [Unknown]

NARRATIVE: CASE EVENT DATE: 201408
